FAERS Safety Report 8089455-1 (Version None)
Quarter: 2012Q1

REPORT INFORMATION
  Report Type: 
  Country: None (occurrence: None)
  Receive Date: 20120128
  Receipt Date: 20110625
  Transmission Date: 20120608
  Serious: No
  Sender: FDA-Public Use
  Company Number: US-ABBOTT-11P-163-0834983-00

PATIENT
  Age: 32 Year
  Sex: Female

DRUGS (11)
  1. DOCUSATE SODIUM [Concomitant]
     Indication: BOWEL MOVEMENT IRREGULARITY
     Dosage: 4-5 TIMES PER DAY
  2. DICYCLOMINE [Concomitant]
     Indication: CROHN'S DISEASE
     Dosage: 1 TABLET BEFORE MEALS AND AT BEDTIME
  3. PROMETHAZINE [Concomitant]
     Indication: NAUSEA
  4. PENTASA [Concomitant]
     Indication: CROHN'S DISEASE
  5. HYDROCODONE BITARTRATE [Concomitant]
     Indication: PAIN
  6. BIG 100 VITAMIN B [Concomitant]
     Indication: VITAMIN SUPPLEMENTATION
  7. NAPROXEN (ALEVE) [Concomitant]
     Indication: PAIN
     Dosage: AS NEEDED
  8. HUMIRA [Suspect]
     Dosage: 2 PENS ON DAY 15
     Dates: start: 20110604
  9. OMEPRAZOLE [Concomitant]
     Indication: CROHN'S DISEASE
  10. MECLIZINE [Concomitant]
     Indication: DIZZINESS
     Dosage: THREE TIMES A DAY AS NEEDED
  11. HUMIRA [Suspect]
     Indication: CROHN'S DISEASE
     Dosage: 4 PENS, INITIAL DOSE DAY 1
     Dates: start: 20110521, end: 20110521

REACTIONS (1)
  - PAIN IN EXTREMITY [None]
